FAERS Safety Report 17900769 (Version 2)
Quarter: 2020Q3

REPORT INFORMATION
  Report Type: Spontaneous
  Country: JP (occurrence: JP)
  Receive Date: 20200616
  Receipt Date: 20200710
  Transmission Date: 20201103
  Serious: Yes (Other)
  Sender: FDA-Public Use
  Company Number: JP-GUERBET-JP-20200075

PATIENT
  Age: 27 Year
  Sex: Female

DRUGS (1)
  1. LIPIODOL [Suspect]
     Active Substance: ETHIODIZED OIL
     Indication: HYSTEROSALPINGOGRAM
     Route: 065

REACTIONS (4)
  - Polyhydramnios [Recovered/Resolved]
  - Product use in unapproved indication [Recovered/Resolved]
  - Iodine overload [Recovered/Resolved]
  - Maternal exposure before pregnancy [Recovered/Resolved]
